FAERS Safety Report 7043085-9 (Version None)
Quarter: 2010Q4

REPORT INFORMATION
  Report Type: 
  Country: None (occurrence: None)
  Receive Date: 20101013
  Receipt Date: 20101004
  Transmission Date: 20110411
  Serious: Yes (Other)
  Sender: FDA-Public Use
  Company Number: US-WYE-H17980110

PATIENT
  Sex: Female
  Weight: 63.56 kg

DRUGS (10)
  1. EFFEXOR XR [Suspect]
     Indication: DEPRESSION
     Dosage: UNKNOWN
     Dates: start: 20070101
  2. NEURONTIN [Concomitant]
     Dosage: UNKNOWN
  3. TRAZODONE HCL [Concomitant]
     Dosage: UNKNOWN
  4. ZOMETA [Concomitant]
     Dosage: UNKNOWN DOSE ONCE A MONTH
     Route: 042
  5. VALIUM [Concomitant]
     Dosage: UNKNOWN
  6. ZOCOR [Concomitant]
     Dosage: UNKNOWN
  7. VISTARIL [Concomitant]
     Dosage: UNKNOWN
  8. GEODON [Suspect]
     Indication: BIPOLAR DISORDER
     Route: 048
     Dates: start: 20050101, end: 20070101
  9. GEODON [Suspect]
     Dates: start: 20070101
  10. VICODIN [Concomitant]
     Dosage: UNKNOWN

REACTIONS (1)
  - BREAST CANCER METASTATIC [None]
